FAERS Safety Report 5348392-3 (Version None)
Quarter: 2007Q2

REPORT INFORMATION
  Report Type: 
  Country: None (occurrence: None)
  Receive Date: 20070605
  Receipt Date: 20070524
  Transmission Date: 20071010
  Serious: Yes (Other)
  Sender: FDA-Public Use
  Company Number: 2007AL002124

PATIENT
  Age: 61 Year
  Sex: Female

DRUGS (6)
  1. TRAMADOL HCL [Suspect]
     Dosage: 50 MG; QD
  2. PARACETAMOL [Concomitant]
  3. AMITRIPTYLINE HCL [Concomitant]
  4. RAMIPRIL [Concomitant]
  5. BENDROFLUMETHIAZIDE [Concomitant]
  6. PREGABALIN [Concomitant]

REACTIONS (1)
  - INCORRECT DOSE ADMINISTERED [None]
